FAERS Safety Report 16518291 (Version 2)
Quarter: 2019Q4

REPORT INFORMATION
  Report Type: Spontaneous
  Country: US (occurrence: US)
  Receive Date: 20190702
  Receipt Date: 20191017
  Transmission Date: 20200122
  Serious: No
  Sender: FDA-Public Use
  Company Number: US-PFIZER INC-2019273230

PATIENT
  Age: 58 Year
  Sex: Male
  Weight: 127 kg

DRUGS (1)
  1. CHANTIX [Suspect]
     Active Substance: VARENICLINE TARTRATE
     Indication: EX-TOBACCO USER
     Dosage: UNK, 2X/DAY(IN THE MORNING AND AT NIGHT)

REACTIONS (3)
  - Hearing aid user [Unknown]
  - Intentional product misuse [Unknown]
  - Nausea [Unknown]
